FAERS Safety Report 5958476-4 (Version None)
Quarter: 2008Q4

REPORT INFORMATION
  Report Type: 
  Country: None (occurrence: None)
  Receive Date: 20081119
  Receipt Date: 20081106
  Transmission Date: 20090506
  Serious: Yes (Hospitalization)
  Sender: FDA-Public Use
  Company Number: JP-ROCHE-596942

PATIENT
  Sex: Male

DRUGS (3)
  1. CELLCEPT [Suspect]
     Indication: PROPHYLAXIS AGAINST TRANSPLANT REJECTION
     Route: 048
     Dates: start: 20001029, end: 20050101
  2. CELLCEPT [Suspect]
     Route: 048
     Dates: start: 20050101, end: 20070703
  3. PROGRAF [Concomitant]
     Route: 048

REACTIONS (1)
  - ERYTHEMA NODOSUM [None]
